FAERS Safety Report 10061345 (Version 1)
Quarter: 2014Q2

REPORT INFORMATION
  Report Type: Spontaneous
  Country: ES (occurrence: ES)
  Receive Date: 20140407
  Receipt Date: 20140407
  Transmission Date: 20141212
  Serious: Yes (Hospitalization)
  Sender: FDA-Public Use
  Company Number: ES-ROCHE-1375614

PATIENT
  Age: 53 Year
  Sex: Female

DRUGS (7)
  1. HERCEPTIN [Suspect]
     Indication: BREAST CANCER
     Route: 042
     Dates: start: 20140110, end: 20140110
  2. DOCETAXEL [Interacting]
     Indication: BREAST CANCER
     Route: 042
     Dates: start: 20140110, end: 20140110
  3. SIMVASTATIN [Concomitant]
     Route: 048
  4. OMEPRAZOL [Concomitant]
     Route: 048
  5. ADOLONTA RETARD [Concomitant]
     Route: 048
  6. SEVREDOL [Concomitant]
     Route: 048
  7. ZOMETA [Concomitant]
     Route: 042
     Dates: start: 20140110

REACTIONS (2)
  - Neutropenia [Recovering/Resolving]
  - Drug interaction [Unknown]
